FAERS Safety Report 14485851 (Version 1)
Quarter: 2018Q1

REPORT INFORMATION
  Report Type: Spontaneous
  Country: US (occurrence: US)
  Receive Date: 20180205
  Receipt Date: 20180205
  Transmission Date: 20180509
  Serious: No
  Sender: FDA-Public Use
  Company Number: US-ABBVIE-17P-163-2159482-00

PATIENT
  Age: 60 Year
  Sex: Female

DRUGS (7)
  1. MAVYRET [Suspect]
     Active Substance: GLECAPREVIR\PIBRENTASVIR
     Indication: CHRONIC HEPATITIS C
     Route: 048
     Dates: start: 201710, end: 201710
  2. METOPROLOL. [Concomitant]
     Active Substance: METOPROLOL
     Indication: PRODUCT USED FOR UNKNOWN INDICATION
     Dosage: THE PATIENT DOSE HAS BEEN ON A STABLE DOSE FOR MORE THAN A YEAR PRIOR TO STARTING MAVYRET.
  3. FOSAMAX [Concomitant]
     Active Substance: ALENDRONATE SODIUM
     Indication: PRODUCT USED FOR UNKNOWN INDICATION
     Dosage: THE PATIENT DOSE HAS BEEN ON A STABLE DOSE FOR MORE THAN A YEAR PRIOR TO STARTING MAVYRET.
  4. SENSIPAR [Concomitant]
     Active Substance: CINACALCET HYDROCHLORIDE
     Indication: PRODUCT USED FOR UNKNOWN INDICATION
     Dosage: THE PATIENT DOSE HAS BEEN ON A STABLE DOSE FOR MORE THAN A YEAR PRIOR TO STARTING MAVYRET.
  5. PRAVASTATIN. [Concomitant]
     Active Substance: PRAVASTATIN
     Indication: BLOOD CHOLESTEROL INCREASED
     Dosage: THE PATIENT HAD BEEN STABLE ON THE CRESTOR DOSE FOR YEARS BEFORE STARTING MAVYRET.
     Route: 048
  6. AMLODIPINE [Concomitant]
     Active Substance: AMLODIPINE BESYLATE
     Indication: PRODUCT USED FOR UNKNOWN INDICATION
     Dosage: THE PATIENT DOSE HAS BEEN ON A STABLE DOSE FOR MORE THAN A YEAR PRIOR TO STARTING MAVYRET.
  7. CALCITRIOL. [Concomitant]
     Active Substance: CALCITRIOL
     Indication: PRODUCT USED FOR UNKNOWN INDICATION
     Dosage: THE PATIENT DOSE HAS BEEN ON A STABLE DOSE FOR MORE THAN A YEAR PRIOR TO STARTING MAVYRET.

REACTIONS (1)
  - Pruritus [Not Recovered/Not Resolved]

NARRATIVE: CASE EVENT DATE: 201710
